FAERS Safety Report 18661019 (Version 1)
Quarter: 2020Q4

REPORT INFORMATION
  Report Type: Spontaneous
  Country: DE (occurrence: DE)
  Receive Date: 20201224
  Receipt Date: 20201224
  Transmission Date: 20210114
  Serious: Yes (Disabling, Other)
  Sender: FDA-Public Use
  Company Number: DE-009507513-2002DEU008923

PATIENT
  Sex: Male

DRUGS (1)
  1. PROPECIA [Suspect]
     Active Substance: FINASTERIDE
     Dosage: UNK
     Route: 048

REACTIONS (4)
  - Post 5-alpha-reductase inhibitor syndrome [Unknown]
  - Mental disorder [Unknown]
  - Feeling abnormal [Unknown]
  - Burning sensation [Unknown]
